FAERS Safety Report 6379978-5 (Version None)
Quarter: 2009Q3

REPORT INFORMATION
  Report Type: 
  Country: None (occurrence: None)
  Receive Date: 20090923
  Receipt Date: 20090918
  Transmission Date: 20100115
  Serious: Yes (Death)
  Sender: FDA-Public Use
  Company Number: ENTC2009-0277

PATIENT
  Age: 49 Year
  Sex: Male

DRUGS (3)
  1. STALEVO 100 [Suspect]
     Indication: PARKINSON'S DISEASE
     Dosage: 200MG TABLETS 5 TIMES A DAY ORAL ; 150 MG 5 TIMES A DAY
     Route: 048
     Dates: start: 20090101
  2. STALEVO 100 [Suspect]
     Indication: PARKINSON'S DISEASE
     Dosage: 200MG TABLETS 5 TIMES A DAY ORAL ; 150 MG 5 TIMES A DAY
     Route: 048
     Dates: start: 20090801
  3. SINEMET CR [Concomitant]

REACTIONS (3)
  - IMPULSE-CONTROL DISORDER [None]
  - SEXUAL DYSFUNCTION [None]
  - SUDDEN DEATH [None]
